FAERS Safety Report 20456554 (Version 2)
Quarter: 2022Q1

REPORT INFORMATION
  Report Type: Spontaneous
  Country: CL (occurrence: CL)
  Receive Date: 20220210
  Receipt Date: 20220301
  Transmission Date: 20220423
  Serious: No
  Sender: FDA-Public Use
  Company Number: CL-LUPIN PHARMACEUTICALS INC.-2022-01759

PATIENT
  Age: 23 Year
  Sex: Female

DRUGS (4)
  1. SIMVASTATIN [Suspect]
     Active Substance: SIMVASTATIN
     Indication: Alopecia areata
     Dosage: 40 MILLIGRAM
     Route: 065
  2. EZETIMIBE [Suspect]
     Active Substance: EZETIMIBE
     Indication: Alopecia areata
     Dosage: 10 MILLIGRAM, QD
     Route: 048
  3. DIPHENCYPRONE [Concomitant]
     Active Substance: DIPHENCYPRONE
     Indication: Alopecia areata
     Dosage: UNK
     Route: 061
  4. MINOXIDIL [Concomitant]
     Active Substance: MINOXIDIL
     Indication: Alopecia areata
     Dosage: UNK (CAPILLARY LOTION)
     Route: 065

REACTIONS (1)
  - Off label use [Unknown]
